FAERS Safety Report 8021898-4 (Version None)
Quarter: 2011Q4

REPORT INFORMATION
  Report Type: 
  Country: None (occurrence: None)
  Receive Date: 20111229
  Receipt Date: 20111222
  Transmission Date: 20120403
  Serious: Yes (Hospitalization)
  Sender: FDA-Public Use
  Company Number: 1145866

PATIENT
  Age: 52 Year
  Sex: Male

DRUGS (1)
  1. METHOTREXATE [Suspect]
     Indication: BURKITT'S LYMPHOMA
     Dosage: 12.5 MG,, INTRATHECAL
     Route: 037

REACTIONS (2)
  - SUBDURAL HYGROMA [None]
  - WRONG TECHNIQUE IN DRUG USAGE PROCESS [None]
